FAERS Safety Report 9046186 (Version 2)
Quarter: 2013Q3

REPORT INFORMATION
  Report Type: Spontaneous
  Country: US (occurrence: US)
  Receive Date: 20130201
  Receipt Date: 20130807
  Transmission Date: 20140515
  Serious: Yes (Hospitalization)
  Sender: FDA-Public Use
  Company Number: US-RANBAXY-2009R3-29708

PATIENT
  Age: 68 Year
  Sex: Male

DRUGS (4)
  1. METFORMIN [Suspect]
     Indication: DIABETES MELLITUS
     Dosage: 500 MG, BID
     Route: 065
  2. METFORMIN [Suspect]
     Indication: DIABETES MELLITUS
     Dosage: 850 MG, BID
     Route: 065
  3. INSULIN [Concomitant]
     Indication: DIABETES MELLITUS
     Route: 065
  4. ASPIRIN [Concomitant]
     Indication: PRODUCT USED FOR UNKNOWN INDICATION
     Route: 065

REACTIONS (1)
  - Hepatitis cholestatic [Recovering/Resolving]
